FAERS Safety Report 13315382 (Version 2)
Quarter: 2017Q1

REPORT INFORMATION
  Report Type: Spontaneous
  Country: JP (occurrence: JP)
  Receive Date: 20170309
  Receipt Date: 20170331
  Transmission Date: 20170428
  Serious: Yes (Death)
  Sender: FDA-Public Use
  Company Number: JP-TAKEDA-2017TJP005090

PATIENT
  Age: 9 Decade
  Sex: Female

DRUGS (1)
  1. INISYNC COMBINATION TABLETS [Suspect]
     Active Substance: ALOGLIPTIN BENZOATE\METFORMIN HYDROCHLORIDE
     Indication: DIABETES MELLITUS
     Dosage: 1 DF, UNK
     Route: 048
     Dates: start: 20170128

REACTIONS (1)
  - Pneumonia [Fatal]
